FAERS Safety Report 24126024 (Version 1)
Quarter: 2024Q3

REPORT INFORMATION
  Report Type: Spontaneous
  Country: GB (occurrence: GB)
  Receive Date: 20240723
  Receipt Date: 20240723
  Transmission Date: 20241017
  Serious: Yes (Hospitalization, Other)
  Sender: MYLAN
  Company Number: GB-MYLANLABS-2024M1066697

PATIENT
  Sex: Male

DRUGS (1)
  1. CLOZARIL [Suspect]
     Active Substance: CLOZAPINE
     Indication: Schizophrenia
     Dosage: 775 MILLIGRAM, QD (175MG ONCE MORNING AND 600MG ONCE NIGHT)
     Route: 048
     Dates: start: 20150718, end: 20240712

REACTIONS (4)
  - Delusion [Unknown]
  - Suicidal ideation [Unknown]
  - Platelet count decreased [Unknown]
  - Therapy cessation [Unknown]

NARRATIVE: CASE EVENT DATE: 20240712
